FAERS Safety Report 15568755 (Version 2)
Quarter: 2019Q1

REPORT INFORMATION
  Report Type: Spontaneous
  Country: RS (occurrence: RS)
  Receive Date: 20181031
  Receipt Date: 20190310
  Transmission Date: 20190417
  Serious: Yes (Hospitalization, Other)
  Sender: FDA-Public Use
  Company Number: RS-FLAMINGO-002284

PATIENT
  Age: 48 Year
  Sex: Female

DRUGS (6)
  1. LEVOFLOXACIN. [Interacting]
     Active Substance: LEVOFLOXACIN
     Indication: URINARY TRACT INFECTION
  2. CALCIUM CARBONATE. [Concomitant]
     Active Substance: CALCIUM CARBONATE
  3. CARVEDILOL/CARVEDILOL HYDROCHLODRIDE [Concomitant]
  4. METRONIDAZOLE. [Suspect]
     Active Substance: METRONIDAZOLE
     Indication: ENTEROCOLITIS
     Dosage: 5 DAYS
  5. RANITIDINE. [Concomitant]
     Active Substance: RANITIDINE
  6. SACCHAROMYCES BOULARDII [Concomitant]
     Active Substance: SACCHAROMYCES CEREVISIAE
     Indication: CLOSTRIDIUM DIFFICILE INFECTION

REACTIONS (6)
  - Delirium [Recovered/Resolved]
  - Confusional state [Recovered/Resolved]
  - Drug interaction [Unknown]
  - Neurotoxicity [Recovered/Resolved]
  - Organic brain syndrome [Recovered/Resolved]
  - Disorientation [Recovered/Resolved]
